FAERS Safety Report 5868965-9 (Version None)
Quarter: 2008Q3

REPORT INFORMATION
  Report Type: 
  Country: None (occurrence: None)
  Receive Date: 20080903
  Receipt Date: 20080821
  Transmission Date: 20090109
  Serious: Yes (Hospitalization)
  Sender: FDA-Public Use
  Company Number: US-ROCHE-529327

PATIENT
  Sex: Female
  Weight: 121.4 kg

DRUGS (4)
  1. PEGASYS [Suspect]
     Indication: HEPATITIS C
     Route: 058
     Dates: start: 20070502, end: 20071025
  2. BLINDED VX-950 [Suspect]
     Indication: HEPATITIS C
     Route: 048
     Dates: start: 20070502, end: 20071016
  3. RIBAVIRIN [Suspect]
     Indication: HEPATITIS C
     Route: 048
     Dates: start: 20070502, end: 20071025
  4. LEXAPRO [Concomitant]
     Dosage: DRUG NAME REPORTED AS: LEXAPRO (ESCITALOPRAM OXALATE).

REACTIONS (5)
  - CHOLECYSTITIS ACUTE [None]
  - CHOLELITHIASIS [None]
  - GASTROENTERITIS [None]
  - HYPOKALAEMIA [None]
  - HYPOVOLAEMIA [None]
